FAERS Safety Report 23582683 (Version 1)
Quarter: 2024Q1

REPORT INFORMATION
  Report Type: Spontaneous
  Country: GB (occurrence: GB)
  Receive Date: 20240229
  Receipt Date: 20240229
  Transmission Date: 20240409
  Serious: Yes (Other)
  Sender: FDA-Public Use
  Company Number: GB-CRESCENT PHARMA LIMITED-2024-GB-01727

PATIENT
  Sex: Male
  Weight: 95.2 kg

DRUGS (2)
  1. SOLIFENACIN SUCCINATE [Suspect]
     Active Substance: SOLIFENACIN SUCCINATE
     Indication: Bladder disorder
     Dosage: 10 MILLIGRAM, UNK
     Route: 065
     Dates: start: 20240202, end: 20240210
  2. SOLIFENACIN SUCCINATE [Suspect]
     Active Substance: SOLIFENACIN SUCCINATE
     Indication: Bladder disorder
     Dosage: 5 MILLIGRAM, UNK
     Route: 065

REACTIONS (4)
  - Hypotension [Recovered/Resolved]
  - Hypersensitivity [Recovered/Resolved]
  - Malaise [Recovered/Resolved]
  - Heart rate increased [Recovered/Resolved]

NARRATIVE: CASE EVENT DATE: 20240204
